FAERS Safety Report 19002207 (Version 1)
Quarter: 2021Q1

REPORT INFORMATION
  Report Type: Spontaneous
  Country: US (occurrence: US)
  Receive Date: 20210312
  Receipt Date: 20210312
  Transmission Date: 20210420
  Serious: Yes (Death)
  Sender: FDA-Public Use
  Company Number: None

PATIENT
  Age: 86 Year
  Sex: Male
  Weight: 81.9 kg

DRUGS (18)
  1. TRELSTAR [Suspect]
     Active Substance: TRIPTORELIN PAMOATE
     Indication: PROSTATE CANCER
     Dosage: ?          OTHER FREQUENCY:EVERY 24 WEEKS;?
     Route: 030
     Dates: start: 20200923, end: 20210312
  2. PANTOPRAZOLE SODIUM. [Concomitant]
     Active Substance: PANTOPRAZOLE SODIUM
  3. ELAVIL OTC SLEEP [Concomitant]
  4. LISINOPRIL. [Concomitant]
     Active Substance: LISINOPRIL
  5. ATORVASTATIN CALCIUM. [Concomitant]
     Active Substance: ATORVASTATIN CALCIUM
  6. AMITRIPTYLINE HCL [Concomitant]
     Active Substance: AMITRIPTYLINE
  7. PROCRIT [Suspect]
     Active Substance: ERYTHROPOIETIN
     Indication: PROSTATE CANCER
     Route: 058
     Dates: start: 20200518, end: 20210312
  8. TOUJEO MAX [Concomitant]
     Active Substance: INSULIN GLARGINE
  9. MEMANTINE HCL [Concomitant]
     Active Substance: MEMANTINE
  10. FUROSEMIDE. [Concomitant]
     Active Substance: FUROSEMIDE
  11. ASPIRIN ADULT LOW DOSE [Concomitant]
     Active Substance: ASPIRIN
  12. CARVEDILOL. [Concomitant]
     Active Substance: CARVEDILOL
  13. FLOMAX [Concomitant]
     Active Substance: TAMSULOSIN HYDROCHLORIDE
  14. SENNA LAXATIVE [Concomitant]
     Active Substance: SENNOSIDES
  15. NOVOLOG [Concomitant]
     Active Substance: INSULIN ASPART
  16. FERROUS SULFATE. [Concomitant]
     Active Substance: FERROUS SULFATE
  17. DONEPEZIL HCL [Concomitant]
     Active Substance: DONEPEZIL HYDROCHLORIDE
  18. POTASSIUM CHLORIDE. [Concomitant]
     Active Substance: POTASSIUM CHLORIDE

REACTIONS (1)
  - Death [None]

NARRATIVE: CASE EVENT DATE: 20210312
